FAERS Safety Report 9613155 (Version 1)
Quarter: 2013Q4

REPORT INFORMATION
  Report Type: Spontaneous
  Country: DE (occurrence: DE)
  Receive Date: 20131010
  Receipt Date: 20131010
  Transmission Date: 20140711
  Serious: Yes (Death, Other)
  Sender: FDA-Public Use
  Company Number: DE-JNJFOC-20131000775

PATIENT
  Age: 3 Decade
  Sex: Male

DRUGS (5)
  1. INFLIXIMAB, RECOMBINANT [Suspect]
     Indication: CROHN^S DISEASE
     Route: 042
  2. CORTICOSTEROIDS [Suspect]
     Indication: CROHN^S DISEASE
     Route: 065
  3. MESALAZINE [Suspect]
     Indication: CROHN^S DISEASE
     Route: 065
  4. AZATHIOPRINE [Suspect]
     Indication: CROHN^S DISEASE
     Route: 065
  5. ADALIMUMAB [Suspect]
     Indication: CROHN^S DISEASE
     Route: 065
     Dates: start: 200712, end: 2009

REACTIONS (9)
  - Squamous cell carcinoma [Fatal]
  - Pneumonia [Fatal]
  - Crohn^s disease [Unknown]
  - Anal fistula [Unknown]
  - Brain abscess [Unknown]
  - Meningitis bacterial [Unknown]
  - Sepsis [Unknown]
  - Brain abscess [Unknown]
  - Convulsion [Unknown]
